FAERS Safety Report 14320320 (Version 4)
Quarter: 2018Q3

REPORT INFORMATION
  Report Type: Spontaneous
  Country: IN (occurrence: IN)
  Receive Date: 20171222
  Receipt Date: 20180925
  Transmission Date: 20181010
  Serious: Yes (Death, Life-Threatening, Other)
  Sender: FDA-Public Use
  Company Number: IN-PFIZER INC-2017540417

PATIENT
  Age: 5 Year
  Sex: Female

DRUGS (3)
  1. ETOPOSIDE. [Suspect]
     Active Substance: ETOPOSIDE
     Indication: RETINOBLASTOMA
     Dosage: AT 4?WEEK INTERVALS. INJ. DAY 1 AND DAY 2: (66MG?73MG)
     Route: 042
     Dates: start: 201405, end: 201507
  2. CARBOPLATIN. [Suspect]
     Active Substance: CARBOPLATIN
     Indication: RETINOBLASTOMA
     Dosage: AT 4?WEEK INTERVALS. DAY 1 AND DAY 2: (150MG?170MG)
     Route: 042
     Dates: start: 201405, end: 201507
  3. VINCRISTINE [Suspect]
     Active Substance: VINCRISTINE
     Indication: RETINOBLASTOMA
     Dosage: AT 4?WEEK INTERVALS. (DAY 1: (0.55?0.61MG)
     Route: 042
     Dates: start: 201405, end: 201507

REACTIONS (3)
  - Second primary malignancy [Unknown]
  - Tumour lysis syndrome [Fatal]
  - Acute myeloid leukaemia [Unknown]
